FAERS Safety Report 5569174-3 (Version None)
Quarter: 2007Q4

REPORT INFORMATION
  Report Type: 
  Country: None (occurrence: None)
  Receive Date: 20071220
  Receipt Date: 20070815
  Transmission Date: 20080405
  Serious: No
  Sender: FDA-Public Use
  Company Number: A0670682A

PATIENT
  Age: 66 Year
  Sex: Male

DRUGS (12)
  1. AVODART [Suspect]
     Dosage: 1CAP AT NIGHT
     Route: 048
     Dates: start: 20070713
  2. LIPITOR [Concomitant]
  3. CENTRUM SILVER [Concomitant]
  4. ASPIRIN [Concomitant]
  5. WELCHOL [Concomitant]
  6. NEXIUM [Concomitant]
  7. AMARYL [Concomitant]
  8. GLUCOPHAGE [Concomitant]
  9. COZAAR [Concomitant]
  10. HYDROCHLOROTHIAZIDE [Concomitant]
  11. POTASSIUM CHLORIDE [Concomitant]
  12. ZYRTEC [Concomitant]

REACTIONS (1)
  - CHROMATURIA [None]
